FAERS Safety Report 5775081-3 (Version None)
Quarter: 2008Q2

REPORT INFORMATION
  Report Type: 
  Country: None (occurrence: None)
  Receive Date: 20080612
  Receipt Date: 20080529
  Transmission Date: 20081010
  Serious: Yes (Hospitalization)
  Sender: FDA-Public Use
  Company Number: 2008AL006008

PATIENT
  Age: 87 Year
  Sex: Male
  Weight: 47.6277 kg

DRUGS (3)
  1. DIGOXIN [Suspect]
     Indication: ATRIAL FIBRILLATION
     Dosage: 0.25 MG PO
     Route: 048
     Dates: start: 20060101
  2. COUMADIN [Concomitant]
  3. FLOMAX [Concomitant]

REACTIONS (6)
  - ASTHENIA [None]
  - BLOOD URINE PRESENT [None]
  - CARDIOACTIVE DRUG LEVEL INCREASED [None]
  - CONDITION AGGRAVATED [None]
  - RENAL MASS [None]
  - WEIGHT DECREASED [None]
